FAERS Safety Report 17057801 (Version 1)
Quarter: 2019Q4

REPORT INFORMATION
  Report Type: Spontaneous
  Country: US (occurrence: US)
  Receive Date: 20191023
  Receipt Date: 20191023
  Transmission Date: 20200122
  Serious: No
  Sender: FDA-Public Use
  Company Number: None

PATIENT
  Sex: Female

DRUGS (1)
  1. GLATIRAMER ACETATE (12X1ML) 40MG/ML MYLAN [Suspect]
     Active Substance: GLATIRAMER ACETATE
     Indication: MULTIPLE SCLEROSIS
     Dosage: ?          OTHER FREQUENCY:3 TIMES A WEEK ;?
     Route: 058
     Dates: start: 20191001, end: 20191021

REACTIONS (5)
  - Hyperhidrosis [None]
  - Vomiting [None]
  - Injection site swelling [None]
  - Nausea [None]
  - Pruritus [None]
